FAERS Safety Report 8780146 (Version 1)
Quarter: 2012Q4

REPORT INFORMATION
  Report Type: Spontaneous
  Country: US (occurrence: None)
  Receive Date: 20120829
  Receipt Date: 20120829
  Transmission Date: 20130627
  Serious: Yes (Other)
  Sender: FDA-Public Use
  Company Number: INT_00108_2012

PATIENT
  Age: 31 Year
  Sex: Female
  Weight: 82.56 kg

DRUGS (2)
  1. CEFEPIME [Suspect]
     Indication: INFECTION
     Route: 042
     Dates: start: 20120515, end: 20120520
  2. VANCOMYCIN HCL [Suspect]
     Indication: INFECTION
     Route: 042
     Dates: start: 20120515, end: 20120521

REACTIONS (2)
  - Rash generalised [None]
  - Rash maculo-papular [None]
